FAERS Safety Report 4866800-9 (Version None)
Quarter: 2005Q4

REPORT INFORMATION
  Report Type: 
  Country: None (occurrence: None)
  Receive Date: 20051222
  Receipt Date: 20051215
  Transmission Date: 20060501
  Serious: Yes (Hospitalization)
  Sender: FDA-Public Use
  Company Number: 2005169173

PATIENT
  Age: 68 Year
  Sex: Male

DRUGS (3)
  1. TAHOR (ATORVASTATIN) [Suspect]
     Dosage: ORAL
     Route: 048
     Dates: start: 20051031
  2. ALLOPURINOL [Suspect]
     Dosage: ORAL
     Route: 048
     Dates: end: 20051031
  3. COLCHIMAX (COLCHICINE, DICYCLOVERINE HYDROCHLORIDE) [Suspect]
     Indication: GOUT
     Dosage: ORAL
     Route: 048
     Dates: start: 20051029, end: 20051029

REACTIONS (5)
  - DERMATITIS BULLOUS [None]
  - EPISTAXIS [None]
  - PETECHIAE [None]
  - PURPURA [None]
  - THROMBOCYTOPENIA [None]
